FAERS Safety Report 17549474 (Version 2)
Quarter: 2020Q2

REPORT INFORMATION
  Report Type: Spontaneous
  Country: FR (occurrence: FR)
  Receive Date: 20200317
  Receipt Date: 20200402
  Transmission Date: 20200713
  Serious: Yes (Other)
  Sender: FDA-Public Use
  Company Number: FR-GLAXOSMITHKLINE-FR2020044227

PATIENT
  Age: 19 Year
  Sex: Female

DRUGS (8)
  1. AVAMYS [Suspect]
     Active Substance: FLUTICASONE FUROATE
     Indication: RHINITIS
     Dosage: 2 DF, QD
     Route: 055
  2. SERETIDE [Suspect]
     Active Substance: FLUTICASONE PROPIONATE\SALMETEROL XINAFOATE
     Dosage: 1 DF, QD
     Route: 055
  3. SINGULAIR [Suspect]
     Active Substance: MONTELUKAST SODIUM
     Indication: ASTHMA
     Dosage: ONE INTAKE DAILY
     Route: 048
  4. FASENRA [Suspect]
     Active Substance: BENRALIZUMAB
     Indication: ASTHMA
     Dosage: 30 MG
     Route: 058
     Dates: start: 20190604
  5. AERIUS (DESLORATADINE) [Suspect]
     Active Substance: DESLORATADINE
     Indication: RHINITIS
     Dosage: 5 MG, QD
     Route: 048
  6. OPTILOVA [Suspect]
     Active Substance: ETHINYL ESTRADIOL\LEVONORGESTREL
     Indication: PRODUCT USED FOR UNKNOWN INDICATION
     Dosage: (FREQUENT DOSE OMISSIONS) SUCH AS CONTRACEPTIVE DRUG.
     Route: 065
  7. AVAMYS [Suspect]
     Active Substance: FLUTICASONE FUROATE
     Dosage: TWICE TO 4 TIMES IN THE EVENING
     Route: 055
  8. SERETIDE [Suspect]
     Active Substance: FLUTICASONE PROPIONATE\SALMETEROL XINAFOATE
     Indication: ASTHMA
     Dosage: 4 DF, QD
     Route: 055

REACTIONS (2)
  - Exposure during pregnancy [Recovered/Resolved with Sequelae]
  - Abortion spontaneous [Recovered/Resolved]

NARRATIVE: CASE EVENT DATE: 201908
